FAERS Safety Report 15891964 (Version 7)
Quarter: 2024Q2

REPORT INFORMATION
  Report Type: Report from Study
  Country: JP (occurrence: JP)
  Receive Date: 20190130
  Receipt Date: 20240419
  Transmission Date: 20240715
  Serious: Yes (Hospitalization, Other)
  Sender: FDA-Public Use
  Company Number: JP-ALEXION-A201806372

PATIENT
  Age: 37 Year
  Sex: Female
  Weight: 68 kg

DRUGS (14)
  1. SOLIRIS [Suspect]
     Active Substance: ECULIZUMAB
     Indication: Myasthenia gravis
     Dosage: 900 MILLIGRAM, QW
     Route: 042
     Dates: start: 20180509, end: 20180530
  2. SOLIRIS [Suspect]
     Active Substance: ECULIZUMAB
     Dosage: 1200 MILLIGRAM, Q2W
     Route: 042
     Dates: start: 20180606, end: 20181218
  3. SOLIRIS [Suspect]
     Active Substance: ECULIZUMAB
     Dosage: 900 MILLIGRAM, QW
     Route: 042
     Dates: start: 20190423, end: 20190514
  4. SOLIRIS [Suspect]
     Active Substance: ECULIZUMAB
     Dosage: 1200 MILLIGRAM, Q2W
     Route: 042
  5. PREDONINE [Concomitant]
     Active Substance: PREDNISOLONE
     Indication: Myasthenia gravis
     Dosage: 22.5 MILLIGRAM, QD
     Route: 048
     Dates: end: 20180524
  6. PREDONINE [Concomitant]
     Active Substance: PREDNISOLONE
     Dosage: 17.5 MILLIGRAM, QD
     Route: 048
     Dates: start: 20180525, end: 20180913
  7. PREDONINE [Concomitant]
     Active Substance: PREDNISOLONE
     Dosage: 15 MILLIGRAM, QD
     Route: 048
     Dates: start: 20180914
  8. DUPHASTON [Concomitant]
     Active Substance: DYDROGESTERONE
     Indication: Endometriosis
     Dosage: 5 MG, BID
     Route: 048
  9. RIVOTRIL [Concomitant]
     Active Substance: CLONAZEPAM
     Indication: Essential tremor
     Dosage: 0.5 MG, QD
     Route: 048
  10. Ferrum [Concomitant]
     Indication: Iron deficiency anaemia
     Dosage: 100 MG, QD
     Route: 048
  11. LANSOPRAZOLE [Concomitant]
     Active Substance: LANSOPRAZOLE
     Indication: Gastrooesophageal reflux disease
     Dosage: 15 MG, QD
     Route: 048
  12. RISEDRONATE SODIUM [Concomitant]
     Active Substance: RISEDRONATE SODIUM
     Indication: Osteoporosis
     Dosage: 75 MG, QMONTH
     Route: 048
  13. PROGRAF [Concomitant]
     Active Substance: TACROLIMUS
     Indication: Myasthenia gravis
     Dosage: 3 MILLIGRAM, QD
     Route: 048
  14. NESINA [Concomitant]
     Active Substance: ALOGLIPTIN BENZOATE
     Indication: Steroid diabetes
     Dosage: 12.5 MILLIGRAM, QD
     Route: 048

REACTIONS (5)
  - Myasthenia gravis [Recovered/Resolved]
  - Meningococcal bacteraemia [Recovered/Resolved]
  - Cellulitis [Recovered/Resolved]
  - Malaise [Not Recovered/Not Resolved]
  - Headache [Recovered/Resolved]

NARRATIVE: CASE EVENT DATE: 20180509
